FAERS Safety Report 21233806 (Version 1)
Quarter: 2022Q3

REPORT INFORMATION
  Report Type: Report from Study
  Country: US (occurrence: None)
  Receive Date: 20220819
  Receipt Date: 20220819
  Transmission Date: 20221027
  Serious: Yes (Hospitalization)
  Sender: FDA-Public Use
  Company Number: US-Eisai Medical Research-EC-2022-121336

PATIENT

DRUGS (4)
  1. LENVATINIB [Suspect]
     Active Substance: LENVATINIB
     Indication: Pancreatic carcinoma
     Dosage: STARTING DOSE: 20 MG FLUCTUATED DOSAGE
     Route: 048
     Dates: start: 20220707, end: 20220808
  2. LENVATINIB [Suspect]
     Active Substance: LENVATINIB
     Indication: Neoplasm malignant
  3. PEMBROLIZUMAB [Suspect]
     Active Substance: PEMBROLIZUMAB
     Indication: Pancreatic carcinoma
     Dosage: UNKNOWN FREQUENCY
     Route: 042
     Dates: start: 20220707, end: 20220808
  4. PEMBROLIZUMAB [Suspect]
     Active Substance: PEMBROLIZUMAB
     Indication: Neoplasm malignant

REACTIONS (1)
  - Angina pectoris [Recovered/Resolved]

NARRATIVE: CASE EVENT DATE: 20220810
